FAERS Safety Report 19416536 (Version 1)
Quarter: 2021Q2

REPORT INFORMATION
  Report Type: Spontaneous
  Country: CA (occurrence: CA)
  Receive Date: 20210614
  Receipt Date: 20210614
  Transmission Date: 20210717
  Serious: Yes (Other)
  Sender: FDA-Public Use
  Company Number: CA-GE HEALTHCARE LIFE SCIENCES-2021CSU002902

PATIENT

DRUGS (5)
  1. OMNISCAN [Suspect]
     Active Substance: GADODIAMIDE
     Indication: RENAL TRANSPLANT
  2. OMNISCAN [Suspect]
     Active Substance: GADODIAMIDE
     Indication: RENAL TRANSPLANT
  3. OMNISCAN [Suspect]
     Active Substance: GADODIAMIDE
     Indication: ANGIOGRAM
     Dosage: 0.2 MMOL/KG, SINGLE
     Route: 042
     Dates: start: 200304, end: 200304
  4. OMNISCAN [Suspect]
     Active Substance: GADODIAMIDE
     Indication: MAGNETIC RESONANCE IMAGING HEART
     Dosage: 0.2 MMOL/KG, SINGLE
     Route: 042
     Dates: start: 200305, end: 200305
  5. ASPIRIN. [Concomitant]
     Active Substance: ASPIRIN

REACTIONS (2)
  - Nephrogenic systemic fibrosis [Unknown]
  - Off label use [Unknown]

NARRATIVE: CASE EVENT DATE: 2003
